FAERS Safety Report 16978167 (Version 1)
Quarter: 2019Q4

REPORT INFORMATION
  Report Type: Spontaneous
  Country: US (occurrence: US)
  Receive Date: 20191031
  Receipt Date: 20191031
  Transmission Date: 20200122
  Serious: Yes (Other)
  Sender: FDA-Public Use
  Company Number: US-ZYDUS-042669

PATIENT
  Age: 57 Year
  Sex: Female

DRUGS (3)
  1. IMIPENEM [Suspect]
     Active Substance: IMIPENEM
     Indication: INFECTION
  2. AZITHROMYCIN ANHYDROUS. [Suspect]
     Active Substance: AZITHROMYCIN ANHYDROUS
     Indication: INFECTION
  3. AMIKACIN/AMIKACIN SULFATE [Suspect]
     Active Substance: AMIKACIN SULFATE
     Indication: INFECTION

REACTIONS (6)
  - Haemoptysis [Unknown]
  - Granulomatosis with polyangiitis [Unknown]
  - Acute kidney injury [Unknown]
  - Ear disorder [Unknown]
  - Viral infection [Unknown]
  - Deafness [Unknown]
